FAERS Safety Report 5732414-1 (Version None)
Quarter: 2008Q2

REPORT INFORMATION
  Report Type: 
  Country: None (occurrence: None)
  Receive Date: 20080508
  Receipt Date: 20080426
  Transmission Date: 20081010
  Serious: Yes (Other)
  Sender: FDA-Public Use
  Company Number: US-PFIZER INC-2008038774

PATIENT
  Sex: Female
  Weight: 81.818 kg

DRUGS (9)
  1. CHANTIX [Suspect]
     Indication: SMOKING CESSATION THERAPY
  2. KLONOPIN [Concomitant]
     Indication: DEPRESSION
  3. CITALOPRAM HYDROBROMIDE [Concomitant]
     Indication: DEPRESSION
  4. DEPAKOTE [Concomitant]
     Indication: DEPRESSION
  5. RISPERDAL [Concomitant]
     Indication: DEPRESSION
  6. METFORMIN HCL [Concomitant]
     Indication: DIABETES MELLITUS
  7. WELLBUTRIN [Concomitant]
  8. ADVAIR HFA [Concomitant]
     Indication: ASTHMA
  9. ALBUTEROL [Concomitant]
     Indication: ASTHMA

REACTIONS (1)
  - DEPRESSION [None]
